FAERS Safety Report 24463023 (Version 4)
Quarter: 2024Q4

REPORT INFORMATION
  Report Type: Spontaneous
  Country: US (occurrence: US)
  Receive Date: 20241018
  Receipt Date: 20241210
  Transmission Date: 20250115
  Serious: No
  Sender: BIOGEN
  Company Number: US-BIOGEN-2024BI01287032

PATIENT
  Sex: Female

DRUGS (9)
  1. AVONEX [Suspect]
     Active Substance: INTERFERON BETA-1A
     Indication: Multiple sclerosis
     Dosage: INJECT 30 MCG (1 INYECTOR) INTRAMUSCULARLY EVERY 7 DAYS
     Route: 050
  2. AVONEX [Suspect]
     Active Substance: INTERFERON BETA-1A
  3. AVONEX [Suspect]
     Active Substance: INTERFERON BETA-1A
  4. AVONEX [Suspect]
     Active Substance: INTERFERON BETA-1A
  5. FLOMAX [Concomitant]
     Active Substance: TAMSULOSIN HYDROCHLORIDE
     Route: 050
  6. BACLOFEN [Concomitant]
     Active Substance: BACLOFEN
     Route: 050
  7. VITAMIN D [Concomitant]
     Active Substance: VITAMIN D NOS
     Dosage: 50000 UNIT
     Route: 050
  8. ETHINYL ESTRADIOL\NORGESTIMATE [Concomitant]
     Active Substance: ETHINYL ESTRADIOL\NORGESTIMATE
     Dosage: 0.18-0.035MG TRI
     Route: 050
  9. ALEVE [Concomitant]
     Active Substance: NAPROXEN SODIUM
     Route: 050

REACTIONS (4)
  - Device difficult to use [Unknown]
  - Drug dose omission by device [Unknown]
  - Swelling [Unknown]
  - Asthenia [Unknown]
